FAERS Safety Report 9671639 (Version 1)
Quarter: 2013Q4

REPORT INFORMATION
  Report Type: Spontaneous
  Country: US (occurrence: US)
  Receive Date: 20131106
  Receipt Date: 20131106
  Transmission Date: 20140711
  Serious: No
  Sender: FDA-Public Use
  Company Number: US-PFIZER INC-2013313022

PATIENT
  Sex: Female
  Weight: 58.96 kg

DRUGS (1)
  1. XANAX [Suspect]
     Dosage: 1 MG AT NOON, 1.5 TABLETS BEFORE BED AND A QUARTER OF A PILL IN THE MIDDLE OF THE NIGHT

REACTIONS (4)
  - Hypotension [Unknown]
  - Tremor [Unknown]
  - Amnesia [Unknown]
  - Palpitations [Unknown]
